FAERS Safety Report 18192230 (Version 1)
Quarter: 2020Q3

REPORT INFORMATION
  Report Type: Spontaneous
  Country: US (occurrence: US)
  Receive Date: 20200825
  Receipt Date: 20200825
  Transmission Date: 20201103
  Serious: No
  Sender: FDA-Public Use
  Company Number: US-PFIZER INC-2020327877

PATIENT
  Age: 60 Year
  Sex: Female

DRUGS (1)
  1. ZOLOFT [Suspect]
     Active Substance: SERTRALINE HYDROCHLORIDE
     Indication: ANXIETY
     Dosage: UNK

REACTIONS (5)
  - Impatience [Unknown]
  - Depressed mood [Unknown]
  - Condition aggravated [Unknown]
  - Anger [Not Recovered/Not Resolved]
  - Depression [Not Recovered/Not Resolved]
